FAERS Safety Report 17326066 (Version 1)
Quarter: 2020Q1

REPORT INFORMATION
  Report Type: Spontaneous
  Country: US (occurrence: US)
  Receive Date: 20200110
  Receipt Date: 20200110
  Transmission Date: 20200409
  Serious: No
  Sender: FDA-Public Use
  Company Number: None

PATIENT
  Age: 2 Year
  Sex: Female

DRUGS (1)
  1. VIGABATRIN 500MG POWDER PACKETS 50/CT [Suspect]
     Active Substance: VIGABATRIN
     Indication: INFANTILE SPASMS
     Route: 048
     Dates: start: 20191113

REACTIONS (4)
  - Drug ineffective [None]
  - Musculoskeletal disorder [None]
  - Status epilepticus [None]
  - Seizure [None]

NARRATIVE: CASE EVENT DATE: 20191226
